FAERS Safety Report 4546712-0 (Version None)
Quarter: 2005Q1

REPORT INFORMATION
  Report Type: 
  Country: None (occurrence: None)
  Receive Date: 20050105
  Receipt Date: 20041220
  Transmission Date: 20050727
  Serious: Yes (Hospitalization)
  Sender: FDA-Public Use
  Company Number: SU-2005-002963

PATIENT
  Age: 40 Year
  Sex: Male

DRUGS (2)
  1. OPENVAS (OLMESARTAN MEDOXOMIL) [Suspect]
     Indication: HYPERTENSION
     Dosage: MG QD PO
     Route: 048
     Dates: start: 20041101, end: 20041201
  2. ALLOPURINOL [Suspect]
     Indication: HYPERURICAEMIA

REACTIONS (2)
  - BONE MARROW DEPRESSION [None]
  - DRUG INTERACTION [None]
